FAERS Safety Report 20620024 (Version 1)
Quarter: 2022Q1

REPORT INFORMATION
  Report Type: Report from Study
  Country: US (occurrence: None)
  Receive Date: 20220322
  Receipt Date: 20220322
  Transmission Date: 20220423
  Serious: Yes (Death, Life-Threatening, Hospitalization, Other)
  Sender: FDA-Public Use
  Company Number: US-ROCHE-756216

PATIENT
  Age: 56 Year
  Sex: Female

DRUGS (6)
  1. BEVACIZUMAB [Suspect]
     Active Substance: BEVACIZUMAB
     Indication: Breast cancer
     Route: 042
  2. LETROZOLE [Suspect]
     Active Substance: LETROZOLE
     Indication: Breast cancer
     Route: 065
  3. OXYCONTIN [Concomitant]
     Active Substance: OXYCODONE HYDROCHLORIDE
  4. DARVON [Concomitant]
     Active Substance: PROPOXYPHENE HYDROCHLORIDE
  5. ADALAT [Concomitant]
     Active Substance: NIFEDIPINE
  6. ZESTORETIC [Concomitant]
     Active Substance: HYDROCHLOROTHIAZIDE\LISINOPRIL

REACTIONS (6)
  - Hepatic failure [Fatal]
  - Blood bilirubin increased [Unknown]
  - Confusional state [Unknown]
  - Hypotension [Unknown]
  - Haemorrhage intracranial [Unknown]
  - Decreased appetite [Unknown]

NARRATIVE: CASE EVENT DATE: 20100331
